FAERS Safety Report 5098222-2 (Version None)
Quarter: 2006Q3

REPORT INFORMATION
  Report Type: 
  Country: None (occurrence: None)
  Receive Date: 20060906
  Receipt Date: 20060607
  Transmission Date: 20061208
  Serious: No
  Sender: FDA-Public Use
  Company Number: US-GLAXOSMITHKLINE-A0608234A

PATIENT
  Age: 81 Year
  Sex: Female

DRUGS (3)
  1. REQUIP [Suspect]
     Indication: DRUG USE FOR UNKNOWN INDICATION
     Dosage: 2MG THREE TIMES PER DAY
     Route: 048
  2. ATIVAN [Concomitant]
  3. UNSPECIFIED MEDICATION [Concomitant]
     Indication: GASTROINTESTINAL DISORDER

REACTIONS (2)
  - NAUSEA [None]
  - SOMNOLENCE [None]
